FAERS Safety Report 10032450 (Version 1)
Quarter: 2014Q1

REPORT INFORMATION
  Report Type: Spontaneous
  Country: KR (occurrence: KR)
  Receive Date: 20140324
  Receipt Date: 20140324
  Transmission Date: 20141002
  Serious: Yes (Disabling)
  Sender: FDA-Public Use
  Company Number: KR-009507513-1403KOR007971

PATIENT
  Age: 33 Year
  Sex: Female

DRUGS (1)
  1. IMPLANON NXT [Suspect]
     Indication: CONTRACEPTION
     Dosage: UNK, STRENGTH 68MG , IMPLANT
     Route: 058
     Dates: start: 20131125, end: 20140317

REACTIONS (2)
  - Activities of daily living impaired [Recovered/Resolved]
  - Vaginal haemorrhage [Recovered/Resolved]
